FAERS Safety Report 25769096 (Version 1)
Quarter: 2025Q3

REPORT INFORMATION
  Report Type: Spontaneous
  Country: US (occurrence: US)
  Receive Date: 20250905
  Receipt Date: 20250905
  Transmission Date: 20251020
  Serious: Yes (Hospitalization, Other)
  Sender: AMGEN
  Company Number: US-AMGEN-USASP2025171315

PATIENT
  Age: 38 Year
  Sex: Male

DRUGS (14)
  1. RITUXIMAB [Suspect]
     Active Substance: RITUXIMAB
     Indication: Graft versus host disease in liver
     Dosage: UNK UNK, QWK, 4 DOSES
     Route: 065
  2. PREDNISONE [Suspect]
     Active Substance: PREDNISONE
     Indication: Graft versus host disease in liver
     Dosage: 0.5 MILLIGRAM/KILOGRAM, QD, FOR 5 DAYS
     Route: 065
  3. PREDNISONE [Suspect]
     Active Substance: PREDNISONE
     Dosage: 0.5 MILLIGRAM/KILOGRAM, QD, FOR 4 DAYS
     Route: 065
  4. PREDNISONE [Suspect]
     Active Substance: PREDNISONE
     Route: 065
  5. PREDNISONE [Suspect]
     Active Substance: PREDNISONE
     Dosage: 40 MILLIGRAM, QD
     Route: 065
  6. PREDNISONE [Suspect]
     Active Substance: PREDNISONE
     Route: 065
  7. EQUINE THYMOCYTE IMMUNE GLOBULIN [Concomitant]
     Active Substance: EQUINE THYMOCYTE IMMUNE GLOBULIN
  8. PENTOSTATIN [Concomitant]
     Active Substance: PENTOSTATIN
  9. CYCLOPHOSPHAMIDE [Concomitant]
     Active Substance: CYCLOPHOSPHAMIDE
     Dosage: 400 MILLIGRAM, QD, 8 DAYS
  10. CYCLOPHOSPHAMIDE [Concomitant]
     Active Substance: CYCLOPHOSPHAMIDE
     Dosage: 50 MILLIGRAM/KILOGRAM, QD, ON DAYS 3 AND 4 POST-HCT
  11. BUSULFAN [Concomitant]
     Active Substance: BUSULFAN
  12. SIROLIMUS [Concomitant]
     Active Substance: SIROLIMUS
  13. SIROLIMUS [Concomitant]
     Active Substance: SIROLIMUS
     Dosage: 2 MILLIGRAM, QD
  14. MYCOPHENOLATE MOFETIL [Concomitant]
     Active Substance: MYCOPHENOLATE MOFETIL
     Dosage: 1 GRAM, TID, FROM DAYS 5 THROUGH 25 POST-HCT

REACTIONS (7)
  - Autoimmune hepatitis [Unknown]
  - Viral infection [Unknown]
  - Graft versus host disease in eye [Recovered/Resolved]
  - Graft versus host disease in lung [Recovered/Resolved]
  - Transaminases increased [Recovered/Resolved]
  - Drug ineffective for unapproved indication [Unknown]
  - Off label use [Unknown]
